FAERS Safety Report 4654997-5 (Version None)
Quarter: 2005Q2

REPORT INFORMATION
  Report Type: 
  Country: None (occurrence: None)
  Receive Date: 20050504
  Receipt Date: 20050113
  Transmission Date: 20051028
  Serious: Yes (Hospitalization)
  Sender: FDA-Public Use
  Company Number: 1738

PATIENT
  Age: 14 Year
  Sex: Male
  Weight: 55 kg

DRUGS (4)
  1. ONTAK [Suspect]
     Indication: GRAFT VERSUS HOST DISEASE
     Dosage: 9 UG/KG/D QD IV
     Route: 042
     Dates: start: 20050111, end: 20050101
  2. AMLODIPINE [Concomitant]
  3. LABETALOL [Concomitant]
  4. NIFEDIPINE [Concomitant]

REACTIONS (5)
  - BLOOD PRESSURE INCREASED [None]
  - GRAFT VERSUS HOST DISEASE [None]
  - MENTAL STATUS CHANGES [None]
  - NEUROTOXICITY [None]
  - VIRAL INFECTION [None]
